FAERS Safety Report 9837091 (Version 1)
Quarter: 2014Q1

REPORT INFORMATION
  Report Type: Spontaneous
  Country: FR (occurrence: FR)
  Receive Date: 20140123
  Receipt Date: 20140123
  Transmission Date: 20141002
  Serious: Yes (Hospitalization)
  Sender: FDA-Public Use
  Company Number: FR-ELI_LILLY_AND_COMPANY-FR201401004878

PATIENT
  Age: 70 Year
  Sex: Female

DRUGS (6)
  1. CYMBALTA [Suspect]
     Indication: NEUROPATHY PERIPHERAL
     Dosage: UNK, QD
     Route: 048
     Dates: start: 20131208, end: 20131219
  2. CYMBALTA [Suspect]
     Dosage: UNK, QD
     Route: 048
     Dates: start: 20131221
  3. ALDACTONE [Suspect]
     Indication: PRODUCT USED FOR UNKNOWN INDICATION
     Dosage: UNK, UNKNOWN
     Route: 048
     Dates: start: 20131203, end: 20131217
  4. COLIMYCINE                         /00013203/ [Concomitant]
     Indication: PRODUCT USED FOR UNKNOWN INDICATION
     Dosage: UNK, UNKNOWN
     Route: 065
     Dates: start: 20131212, end: 20131212
  5. FOSFOMYCIN [Concomitant]
     Indication: PRODUCT USED FOR UNKNOWN INDICATION
     Dosage: UNK, UNKNOWN
     Route: 065
     Dates: start: 20131202, end: 20131202
  6. FOSFOMYCIN [Concomitant]
     Dosage: UNK, UNKNOWN
     Route: 065
     Dates: start: 20131218

REACTIONS (5)
  - Drug reaction with eosinophilia and systemic symptoms [Recovering/Resolving]
  - Agranulocytosis [Recovered/Resolved]
  - Off label use [Unknown]
  - C-reactive protein increased [Unknown]
  - Procalcitonin increased [Unknown]
